FAERS Safety Report 25790252 (Version 2)
Quarter: 2025Q3

REPORT INFORMATION
  Report Type: Report from Study
  Country: US (occurrence: US)
  Receive Date: 20250911
  Receipt Date: 20250918
  Transmission Date: 20251020
  Serious: Yes (Other)
  Sender: MYLAN
  Company Number: US-MYLANLABS-2025M1076341

PATIENT
  Age: 16 Year
  Sex: Male

DRUGS (4)
  1. PREDNISONE [Suspect]
     Active Substance: PREDNISONE
     Indication: Product used for unknown indication
  2. PREDNISONE [Suspect]
     Active Substance: PREDNISONE
  3. PREDNISONE [Suspect]
     Active Substance: PREDNISONE
  4. ELEVIDYS [Suspect]
     Active Substance: DELANDISTROGENE MOXEPARVOVEC-ROKL
     Indication: Duchenne muscular dystrophy
     Dates: start: 20250612, end: 20250612

REACTIONS (5)
  - Psychotic disorder [Recovering/Resolving]
  - Eating disorder [Recovering/Resolving]
  - Decreased appetite [Recovering/Resolving]
  - Hepatic enzyme increased [Recovering/Resolving]
  - Insomnia [Recovering/Resolving]

NARRATIVE: CASE EVENT DATE: 20250601
